FAERS Safety Report 9757357 (Version 1)
Quarter: 2013Q4

REPORT INFORMATION
  Report Type: Spontaneous
  Country: US (occurrence: US)
  Receive Date: 20131214
  Receipt Date: 20131214
  Transmission Date: 20140711
  Serious: No
  Sender: FDA-Public Use
  Company Number: US-009507513-1311USA012033

PATIENT
  Sex: Female

DRUGS (2)
  1. MIRALAX [Suspect]
     Route: 048
  2. LINZESS [Suspect]

REACTIONS (1)
  - Visual impairment [Unknown]
